FAERS Safety Report 4649607-7 (Version None)
Quarter: 2005Q2

REPORT INFORMATION
  Report Type: 
  Country: None (occurrence: None)
  Receive Date: 20050502
  Receipt Date: 20050421
  Transmission Date: 20051028
  Serious: Yes (Hospitalization)
  Sender: FDA-Public Use
  Company Number: MX-BOEHRINGER INGELHEIM PHARMACEUTICALS, INC.-2005-BP-06563MX

PATIENT
  Sex: Male
  Weight: 87 kg

DRUGS (4)
  1. MICARDIS HCT [Suspect]
     Indication: HYPERTENSION
     Dosage: 80/12.5 MG
     Route: 048
     Dates: start: 20041209
  2. BI-EUGLUCON [Concomitant]
     Indication: DIABETES MELLITUS
     Route: 048
  3. ASPIRINA PROTECT (MICROENCAPSULATED ACETYLSALICYLIC ACID) [Concomitant]
     Indication: VENOUS INSUFFICIENCY
     Route: 048
  4. CLOPIDOGREL [Concomitant]
     Indication: VENOUS INSUFFICIENCY
     Route: 048

REACTIONS (1)
  - THROMBOPHLEBITIS [None]
